FAERS Safety Report 25170590 (Version 2)
Quarter: 2025Q2

REPORT INFORMATION
  Report Type: Spontaneous
  Country: JP (occurrence: JP)
  Receive Date: 20250408
  Receipt Date: 20250415
  Transmission Date: 20250716
  Serious: Yes (Hospitalization, Other)
  Sender: UCB
  Company Number: JP-UCBJ-CD202504605UCBPHAPROD

PATIENT
  Age: 3 Decade
  Sex: Female

DRUGS (2)
  1. LEVETIRACETAM [Suspect]
     Active Substance: LEVETIRACETAM
     Indication: Epilepsy
     Route: 048
  2. LAMOTRIGINE [Suspect]
     Active Substance: LAMOTRIGINE
     Indication: Epilepsy

REACTIONS (5)
  - Altered state of consciousness [Recovering/Resolving]
  - Dyspnoea [Recovering/Resolving]
  - Ventricular tachycardia [Recovering/Resolving]
  - Generalised tonic-clonic seizure [Recovering/Resolving]
  - Overdose [Unknown]
